FAERS Safety Report 14991050 (Version 1)
Quarter: 2018Q2

REPORT INFORMATION
  Report Type: Spontaneous
  Country: US (occurrence: US)
  Receive Date: 20180608
  Receipt Date: 20180608
  Transmission Date: 20180711
  Serious: No
  Sender: FDA-Public Use
  Company Number: US-TEVA-2018-US-901474

PATIENT
  Age: 62 Year
  Sex: Female

DRUGS (3)
  1. CORGARD [Concomitant]
     Active Substance: NADOLOL
     Indication: HYPERTENSION
  2. VENLAFAXINE HYDROCHLORIDE. [Suspect]
     Active Substance: VENLAFAXINE HYDROCHLORIDE
     Indication: DEPRESSION
     Dosage: EXTENDED-RELEASE CAPSULES
     Route: 065
     Dates: start: 20180527
  3. CORGARD [Concomitant]
     Active Substance: NADOLOL
     Indication: MIGRAINE
     Dosage: 20 MILLIGRAM DAILY;

REACTIONS (2)
  - Nervousness [Unknown]
  - Insomnia [Unknown]

NARRATIVE: CASE EVENT DATE: 20180530
